FAERS Safety Report 9664706 (Version 2)
Quarter: 2013Q4

REPORT INFORMATION
  Report Type: Report from Study
  Country: US (occurrence: US)
  Receive Date: 20131101
  Receipt Date: 20131101
  Transmission Date: 20140711
  Serious: Yes (Hospitalization, Other)
  Sender: FDA-Public Use
  Company Number: US-ABBVIE-13P-163-1072183-00

PATIENT
  Age: 55 Year
  Sex: Female
  Weight: 74 kg

DRUGS (36)
  1. HUMIRA [Suspect]
     Indication: RHEUMATOID ARTHRITIS
     Route: 058
     Dates: start: 201201, end: 201206
  2. HUMIRA [Suspect]
     Route: 058
     Dates: start: 201206
  3. NAFCILLIN [Suspect]
     Indication: SEPSIS
     Route: 042
     Dates: start: 20130208, end: 20130222
  4. LEFLUNAMIDE [Concomitant]
     Indication: RHEUMATOID ARTHRITIS
  5. LIVALO [Concomitant]
     Indication: BLOOD CHOLESTEROL INCREASED
  6. NEXIUM [Concomitant]
     Indication: GASTROOESOPHAGEAL REFLUX DISEASE
  7. ZANTAC [Concomitant]
     Indication: GASTROOESOPHAGEAL REFLUX DISEASE
  8. BENICAR [Concomitant]
     Indication: HYPERTENSION
     Dates: end: 201302
  9. AMLODIPINE [Concomitant]
     Indication: HYPERTENSION
     Dates: start: 201302
  10. SYMBICORT [Concomitant]
     Indication: ASTHMA
  11. FENTANYL [Concomitant]
     Indication: RHEUMATOID ARTHRITIS
     Route: 062
     Dates: end: 201302
  12. FENTANYL [Concomitant]
     Route: 062
     Dates: start: 201302
  13. FLONASE [Concomitant]
     Indication: HYPERSENSITIVITY
     Route: 045
  14. LASIX [Concomitant]
     Indication: FLUID RETENTION
  15. OXYCODONE IR [Concomitant]
     Indication: RHEUMATOID ARTHRITIS
  16. PREDNISONE [Concomitant]
     Indication: RHEUMATOID ARTHRITIS
  17. XANAX [Concomitant]
     Indication: ANXIETY
     Dosage: 1 HS UP TO Q4H PRN
     Dates: end: 201302
  18. XANAX [Concomitant]
     Indication: MUSCLE SPASMS
  19. CALCITRIOL [Concomitant]
     Indication: VITAMIN SUPPLEMENTATION
     Dosage: M-W-F
     Dates: end: 201302
  20. FLOVENT [Concomitant]
     Indication: ASTHMA
     Route: 055
     Dates: end: 201302
  21. SINGULAIR [Concomitant]
     Indication: ASTHMA
     Dates: end: 201302
  22. ZANAFLEX [Concomitant]
     Indication: BACK PAIN
     Dates: start: 201302
  23. GLUCOSAMINE/CHONDROITIN [Concomitant]
     Indication: PRODUCT USED FOR UNKNOWN INDICATION
  24. COZAAR [Concomitant]
     Indication: PRODUCT USED FOR UNKNOWN INDICATION
  25. XYZAL [Concomitant]
     Indication: PRODUCT USED FOR UNKNOWN INDICATION
  26. PATADAY [Concomitant]
     Indication: PRODUCT USED FOR UNKNOWN INDICATION
  27. DURAGESIC [Concomitant]
     Indication: PRODUCT USED FOR UNKNOWN INDICATION
  28. XOPENEX [Concomitant]
     Indication: PRODUCT USED FOR UNKNOWN INDICATION
     Dosage: 2 PUFF/1 NEB TX Q4H PRN
  29. CENTRUM WOMEN^S 50 ULTRA [Concomitant]
     Indication: PRODUCT USED FOR UNKNOWN INDICATION
  30. POTASSIUM [Concomitant]
     Indication: PRODUCT USED FOR UNKNOWN INDICATION
  31. VITAMIN D [Concomitant]
     Indication: PRODUCT USED FOR UNKNOWN INDICATION
  32. FISH OIL [Concomitant]
     Indication: PRODUCT USED FOR UNKNOWN INDICATION
  33. ATROVENT [Concomitant]
     Indication: PRODUCT USED FOR UNKNOWN INDICATION
     Dosage: 2 PUFF Q4H PRN
  34. SURFAK STOOL SOFTENER [Concomitant]
     Indication: PRODUCT USED FOR UNKNOWN INDICATION
  35. CYCLOBENAZPRINE [Concomitant]
     Indication: PRODUCT USED FOR UNKNOWN INDICATION
     Dosage: QHS
  36. OS CAL [Concomitant]
     Indication: PRODUCT USED FOR UNKNOWN INDICATION

REACTIONS (35)
  - Renal failure acute [Not Recovered/Not Resolved]
  - Dehydration [Recovered/Resolved]
  - Asthenia [Not Recovered/Not Resolved]
  - Arthralgia [Not Recovered/Not Resolved]
  - Pallor [Recovered/Resolved]
  - Confusional state [Recovered/Resolved]
  - Oedema [Recovering/Resolving]
  - Back pain [Not Recovered/Not Resolved]
  - Septic shock [Recovered/Resolved]
  - Anaemia [Unknown]
  - Drug hypersensitivity [Recovered/Resolved]
  - Pruritus generalised [Recovered/Resolved]
  - Rash [Recovered/Resolved]
  - Urinary tract infection [Recovered/Resolved]
  - Vessel puncture site haematoma [Recovered/Resolved]
  - Fall [Recovered/Resolved]
  - Contusion [Recovered/Resolved]
  - Musculoskeletal pain [Not Recovered/Not Resolved]
  - Arthritis [Not Recovered/Not Resolved]
  - Joint range of motion decreased [Not Recovered/Not Resolved]
  - Staphylococcal bacteraemia [Unknown]
  - Musculoskeletal stiffness [Unknown]
  - Arthralgia [Unknown]
  - Joint swelling [Unknown]
  - Synovial cyst [Unknown]
  - Poor quality sleep [Unknown]
  - Nausea [Unknown]
  - Dyspepsia [Unknown]
  - Mucosal dryness [Unknown]
  - Pain [Unknown]
  - Mobility decreased [Unknown]
  - Mobility decreased [Unknown]
  - Synovitis [Unknown]
  - Rotator cuff syndrome [Unknown]
  - Cellulitis [Unknown]
